FAERS Safety Report 21147837 (Version 2)
Quarter: 2022Q3

REPORT INFORMATION
  Report Type: Spontaneous
  Country: US (occurrence: US)
  Receive Date: 20220729
  Receipt Date: 20220901
  Transmission Date: 20221026
  Serious: No
  Sender: FDA-Public Use
  Company Number: US-PFIZER INC-202201010728

PATIENT
  Age: 75 Year
  Sex: Female
  Weight: 77.551 kg

DRUGS (1)
  1. PAXLOVID [Suspect]
     Active Substance: NIRMATRELVIR\RITONAVIR
     Indication: COVID-19 treatment
     Dosage: UNK (1 PILL DONT KNOW DOSAGE)
     Dates: start: 20220722, end: 20220723

REACTIONS (6)
  - Headache [Recovered/Resolved]
  - Middle insomnia [Recovered/Resolved]
  - Muscle spasms [Recovered/Resolved]
  - Head discomfort [Unknown]
  - Feeling abnormal [Unknown]
  - Dyspnoea [Unknown]

NARRATIVE: CASE EVENT DATE: 20220101
